FAERS Safety Report 9747049 (Version 1)
Quarter: 2013Q4

REPORT INFORMATION
  Report Type: Report from Study
  Country: US (occurrence: US)
  Receive Date: 20131211
  Receipt Date: 20131211
  Transmission Date: 20140711
  Serious: Yes (Hospitalization)
  Sender: FDA-Public Use
  Company Number: US-ONYX-2013-1945

PATIENT
  Age: 49 Year
  Sex: Male
  Weight: 87.2 kg

DRUGS (3)
  1. CARFILZOMIB [Suspect]
     Indication: PLASMA CELL MYELOMA
     Route: 042
     Dates: start: 20131029, end: 20131112
  2. DEXAMETHASONE [Concomitant]
  3. ONDANSETRON [Concomitant]
     Route: 042

REACTIONS (1)
  - Pulmonary embolism [Unknown]
